FAERS Safety Report 18164568 (Version 1)
Quarter: 2020Q3

REPORT INFORMATION
  Report Type: Spontaneous
  Country: JP (occurrence: JP)
  Receive Date: 20200818
  Receipt Date: 20200818
  Transmission Date: 20201103
  Serious: Yes (Other)
  Sender: FDA-Public Use
  Company Number: JP-ELI_LILLY_AND_COMPANY-JP202002002877

PATIENT
  Age: 77 Year
  Sex: Female
  Weight: 59 kg

DRUGS (3)
  1. VERZENIO [Suspect]
     Active Substance: ABEMACICLIB
     Indication: BREAST CANCER STAGE IV
     Dosage: 100 MG, DAILY
     Route: 048
     Dates: start: 20191218, end: 20200205
  2. OLOPATADINE. [Concomitant]
     Active Substance: OLOPATADINE
     Indication: PRURITUS
     Dosage: 5 MG
     Route: 048
     Dates: start: 20200108, end: 20200115
  3. FASLODEX [Concomitant]
     Active Substance: FULVESTRANT
     Indication: BREAST CANCER STAGE IV
     Dosage: 500 MG, MONTHLY (1/M)
     Route: 030
     Dates: start: 20191204

REACTIONS (3)
  - White blood cell count decreased [Recovered/Resolved]
  - Liver disorder [Recovering/Resolving]
  - Neutrophil count decreased [Recovered/Resolved]

NARRATIVE: CASE EVENT DATE: 20200108
